FAERS Safety Report 9636341 (Version 4)
Quarter: 2014Q1

REPORT INFORMATION
  Report Type: Report from Study
  Country: JP (occurrence: JP)
  Receive Date: 20131021
  Receipt Date: 20140225
  Transmission Date: 20141002
  Serious: Yes (Other)
  Sender: FDA-Public Use
  Company Number: JP-GILEAD-2013-0085621

PATIENT
  Age: 75 Year
  Sex: Female

DRUGS (8)
  1. AMBRISENTAN [Suspect]
     Indication: PULMONARY HYPERTENSION
     Dosage: 5 MG, QD
     Route: 048
     Dates: start: 20121012, end: 20130214
  2. AMBRISENTAN [Suspect]
     Dosage: 2.5 MG
     Route: 048
     Dates: start: 20120920, end: 20121011
  3. BERAPROST SODIUM [Concomitant]
     Indication: PULMONARY HYPERTENSION
     Dosage: UNK
     Route: 048
     Dates: end: 20130214
  4. PREDNISOLONE [Concomitant]
     Indication: SCLERODERMA
     Route: 048
  5. ANPLAG [Concomitant]
     Indication: ARTERIOSCLEROSIS
     Route: 048
  6. JUVELA N [Concomitant]
     Indication: DYSLIPIDAEMIA
     Route: 048
  7. BENET [Concomitant]
     Indication: OSTEOPOROSIS
     Route: 048
  8. OMEPRAL                            /00661201/ [Concomitant]
     Indication: GASTROOESOPHAGEAL REFLUX DISEASE
     Route: 048

REACTIONS (1)
  - Interstitial lung disease [Not Recovered/Not Resolved]
